FAERS Safety Report 4836471-6 (Version None)
Quarter: 2005Q4

REPORT INFORMATION
  Report Type: 
  Country: None (occurrence: None)
  Receive Date: 20051123
  Receipt Date: 20051111
  Transmission Date: 20060501
  Serious: Yes (Other)
  Sender: FDA-Public Use
  Company Number: PHEH2005US12463

PATIENT
  Age: 66 Year
  Sex: Female

DRUGS (2)
  1. ZELNORM [Suspect]
     Indication: CONSTIPATION
     Dosage: 6 MG, BID
     Dates: start: 20050204, end: 20050309
  2. ASPIRIN [Concomitant]
     Dosage: 81 MG, UNK

REACTIONS (4)
  - BIOPSY SMALL INTESTINE [None]
  - GASTROSTOMY TUBE INSERTION [None]
  - INTESTINAL MASS [None]
  - SMALL INTESTINAL RESECTION [None]
